FAERS Safety Report 12870396 (Version 5)
Quarter: 2019Q1

REPORT INFORMATION
  Report Type: Report from Study
  Country: US (occurrence: US)
  Receive Date: 20161021
  Receipt Date: 20190320
  Transmission Date: 20190417
  Serious: Yes (Hospitalization, Other)
  Sender: FDA-Public Use
  Company Number: PHEH2016US026750

PATIENT
  Age: 68 Year
  Sex: Female
  Weight: 150 kg

DRUGS (4)
  1. PROMACTA [Suspect]
     Active Substance: ELTROMBOPAG OLAMINE
     Dosage: 75 MG, QD
     Route: 048
  2. PROMACTA [Suspect]
     Active Substance: ELTROMBOPAG OLAMINE
     Dosage: 50 MG, QD
     Route: 048
  3. PROMACTA [Suspect]
     Active Substance: ELTROMBOPAG OLAMINE
     Indication: IMMUNE THROMBOCYTOPENIC PURPURA
     Dosage: 25 MG, QD
     Route: 048
     Dates: start: 2015
  4. PROMACTA [Suspect]
     Active Substance: ELTROMBOPAG OLAMINE
     Dosage: UNK
     Route: 048

REACTIONS (6)
  - Cerebrovascular accident [Unknown]
  - Platelet count decreased [Unknown]
  - Monoplegia [Unknown]
  - Platelet aggregation increased [Unknown]
  - Pulmonary embolism [Unknown]
  - Oxygen consumption decreased [Not Recovered/Not Resolved]

NARRATIVE: CASE EVENT DATE: 20190211
